FAERS Safety Report 8966065 (Version 1)
Quarter: 2012Q4

REPORT INFORMATION
  Report Type: 
  Country: US (occurrence: US)
  Receive Date: 20121217
  Receipt Date: 20121217
  Transmission Date: 20130627
  Serious: Yes (Other)
  Sender: FDA-Public Use
  Company Number: US-AMGEN-USASP2012079449

PATIENT
  Age: 48 Year
  Sex: Female

DRUGS (1)
  1. ENBREL [Suspect]
     Indication: RHEUMATOID ARTHRITIS
     Dosage: 50 mg, weekly
     Dates: start: 20120608, end: 20121109

REACTIONS (5)
  - Dysuria [Recovered/Resolved]
  - Nerve injury [Recovered/Resolved]
  - Perineal pain [Recovered/Resolved]
  - Bladder spasm [Not Recovered/Not Resolved]
  - Herpes zoster [Not Recovered/Not Resolved]
